FAERS Safety Report 9868307 (Version 3)
Quarter: 2014Q2

REPORT INFORMATION
  Report Type: Report from Study
  Country: CA (occurrence: CA)
  Receive Date: 20140204
  Receipt Date: 20140422
  Transmission Date: 20141212
  Serious: Yes (Other)
  Sender: FDA-Public Use
  Company Number: CA-SANOFI-AVENTIS-2013SA067575

PATIENT
  Age: 51 Year
  Sex: Female
  Weight: 84.2 kg

DRUGS (19)
  1. TERIFLUNOMIDE [Suspect]
     Indication: MULTIPLE SCLEROSIS RELAPSE
     Dosage: DOSE:1 UNIT(S)
     Route: 048
     Dates: start: 20071212, end: 20130711
  2. ASA [Concomitant]
     Indication: PROPHYLAXIS
     Route: 048
     Dates: start: 20050316
  3. OXYBUTYNIN [Concomitant]
     Indication: POLLAKIURIA
     Route: 048
     Dates: start: 20060718
  4. IBUPROFEN [Concomitant]
     Indication: HEADACHE
     Route: 065
     Dates: start: 20061109
  5. VITAMIN D [Concomitant]
     Indication: VITAMIN SUPPLEMENTATION
     Route: 048
     Dates: start: 20090901
  6. HYDROCORTISONE [Concomitant]
     Indication: ECZEMA
     Route: 061
     Dates: start: 2001
  7. ALL OTHER THERAPEUTIC PRODUCTS [Concomitant]
     Indication: WEIGHT DECREASED
     Dosage: DOSE:14 UNIT(S)
     Route: 048
     Dates: start: 20010628
  8. ATIVAN [Concomitant]
     Indication: SLEEP DISORDER
     Route: 060
     Dates: start: 20110210
  9. AMITRIPTYLINE [Concomitant]
     Indication: SLEEP DISORDER
     Route: 048
     Dates: start: 20110210
  10. GABAPENTIN [Concomitant]
     Indication: MUSCLE SPASMS
     Route: 048
     Dates: start: 20110210
  11. PROZAC [Concomitant]
     Indication: DEPRESSION
     Route: 048
     Dates: start: 20110222
  12. PROZAC [Concomitant]
     Indication: DEPRESSION
     Route: 048
     Dates: start: 20130413
  13. CLONIDINE [Concomitant]
     Indication: HOT FLUSH
     Route: 048
     Dates: start: 20110825
  14. PANTOLOC [Concomitant]
     Indication: IRRITABLE BOWEL SYNDROME
     Route: 048
     Dates: start: 20110808
  15. DICETEL [Concomitant]
     Indication: IRRITABLE BOWEL SYNDROME
     Route: 048
     Dates: start: 20120818
  16. GRAVOL [Concomitant]
     Indication: NAUSEA
     Route: 048
     Dates: start: 20130617
  17. ERYTHROMYCIN [Concomitant]
     Indication: ALVEOLAR OSTEITIS
     Route: 065
     Dates: start: 20130531
  18. ERYTHROMYCIN [Concomitant]
     Indication: POST PROCEDURAL INFECTION
     Route: 065
     Dates: start: 20130531
  19. TORADOL [Concomitant]
     Indication: PRODUCT USED FOR UNKNOWN INDICATION
     Route: 065
     Dates: start: 20130601

REACTIONS (1)
  - Tooth abscess [Recovered/Resolved]
